FAERS Safety Report 24900772 (Version 1)
Quarter: 2025Q1

REPORT INFORMATION
  Report Type: Spontaneous
  Country: JP (occurrence: JP)
  Receive Date: 20250129
  Receipt Date: 20250129
  Transmission Date: 20250408
  Serious: Yes (Other)
  Sender: BRACCO
  Company Number: JP-BRACCO-2025JP00355

PATIENT
  Age: 78 Year
  Sex: Female

DRUGS (1)
  1. IOMERON [Suspect]
     Active Substance: IOMEPROL
     Indication: Angiogram cerebral
     Route: 042

REACTIONS (1)
  - Encephalitis [Recovering/Resolving]
